FAERS Safety Report 9267681 (Version 3)
Quarter: 2013Q4

REPORT INFORMATION
  Report Type: Spontaneous
  Country: CA (occurrence: CA)
  Receive Date: 20130502
  Receipt Date: 20131219
  Transmission Date: 20140711
  Serious: Yes (Death)
  Sender: FDA-Public Use
  Company Number: CA-PFIZER INC-2013135924

PATIENT
  Age: 81 Year
  Sex: Male

DRUGS (4)
  1. INLYTA [Suspect]
     Indication: RENAL CELL CARCINOMA
     Dosage: 5 MG, 2X/DAY
     Dates: start: 20121124
  2. INLYTA [Suspect]
     Dosage: 7 MG, 2X/DAY (CYCLE TWO)
  3. INLYTA [Suspect]
     Dosage: 10 MG, 2X/DAY (THIRD AND FOURTH CYCLE)
  4. INLYTA [Suspect]
     Dosage: 5 MG, 2X/DAY (CYCLE FIVE)

REACTIONS (1)
  - Death [Fatal]
